FAERS Safety Report 24640732 (Version 1)
Quarter: 2024Q4

REPORT INFORMATION
  Report Type: Spontaneous
  Country: US (occurrence: US)
  Receive Date: 20241120
  Receipt Date: 20241120
  Transmission Date: 20250115
  Serious: Yes (Hospitalization)
  Sender: DR REDDYS
  Company Number: None

PATIENT
  Age: 59 Year
  Sex: Female

DRUGS (9)
  1. CLOZAPINE [Suspect]
     Active Substance: CLOZAPINE
     Indication: Parkinson^s disease
  2. CLOZAPINE [Suspect]
     Active Substance: CLOZAPINE
     Dosage: DOSE INCREASED
  3. CLOZAPINE [Suspect]
     Active Substance: CLOZAPINE
  4. QUETIAPINE [Suspect]
     Active Substance: QUETIAPINE
     Indication: Parkinson^s disease
  5. FAMOTIDINE [Concomitant]
     Active Substance: FAMOTIDINE
     Indication: Product used for unknown indication
  6. ASPIRIN [Concomitant]
     Active Substance: ASPIRIN
     Indication: Product used for unknown indication
  7. LEVOTHYROXINE [Concomitant]
     Active Substance: LEVOTHYROXINE
     Indication: Product used for unknown indication
  8. SENNA [Concomitant]
     Active Substance: SENNA LEAF\SENNOSIDES\SENNOSIDES A AND B
     Indication: Product used for unknown indication
  9. LITHIUM [Concomitant]
     Active Substance: LITHIUM
     Indication: Product used for unknown indication

REACTIONS (2)
  - Autoimmune myocarditis [Recovered/Resolved]
  - Hypersensitivity myocarditis [Recovered/Resolved]
